FAERS Safety Report 6548597-X (Version None)
Quarter: 2010Q1

REPORT INFORMATION
  Report Type: 
  Country: None (occurrence: None)
  Receive Date: 20100124
  Receipt Date: 20090831
  Transmission Date: 20100710
  Serious: No
  Sender: FDA-Public Use
  Company Number: US-ALLERGAN-0910510US

PATIENT
  Age: 72 Year
  Sex: Male
  Weight: 87.075 kg

DRUGS (7)
  1. RESTASIS [Suspect]
     Indication: DRY EYE
     Dosage: 1 GTT, BID (AM AND PM)
     Route: 047
  2. OTC EYE DROPS [Concomitant]
  3. GEL [Concomitant]
     Dosage: NIGHT TIME USE
  4. OPTIVE [Concomitant]
  5. BLOOD PRESSURE MED [Concomitant]
  6. REFRESH PLUS [Concomitant]
  7. SYSTANE [Concomitant]

REACTIONS (1)
  - THERAPEUTIC RESPONSE DECREASED [None]
